FAERS Safety Report 4687193-6 (Version None)
Quarter: 2005Q2

REPORT INFORMATION
  Report Type: 
  Country: None (occurrence: None)
  Receive Date: 20050607
  Receipt Date: 20050525
  Transmission Date: 20051028
  Serious: Yes (Disabling, Other)
  Sender: FDA-Public Use
  Company Number: 2005079638

PATIENT
  Sex: Female
  Weight: 59.8748 kg

DRUGS (6)
  1. CELEBREX [Suspect]
     Indication: OSTEOARTHRITIS
     Dosage: 400 MG (200 MG, 2 IN 1 D), ORAL
     Route: 048
  2. WARFARIN SODIUM [Concomitant]
  3. DYAZIDE [Concomitant]
  4. ASPIRIN [Concomitant]
  5. BENAZEPRIL HCL [Concomitant]
  6. HYDROXYCHLOROQUINE SULFATE [Concomitant]

REACTIONS (3)
  - ABASIA [None]
  - CARTILAGE INJURY [None]
  - CHONDROPATHY [None]
